FAERS Safety Report 12700340 (Version 3)
Quarter: 2020Q3

REPORT INFORMATION
  Report Type: Spontaneous
  Country: US (occurrence: US)
  Receive Date: 20160830
  Receipt Date: 20200923
  Transmission Date: 20201102
  Serious: No
  Sender: FDA-Public Use
  Company Number: US-SA-2015SA194558

PATIENT

DRUGS (2)
  1. FABRAZYME [Suspect]
     Active Substance: AGALSIDASE BETA
     Dosage: 95 MG, QOW
     Route: 041
     Dates: start: 20151112
  2. FABRAZYME [Suspect]
     Active Substance: AGALSIDASE BETA
     Indication: FABRY^S DISEASE
     Dosage: 80 MG, QOW
     Route: 041
     Dates: start: 2015, end: 2015

REACTIONS (7)
  - Aphasia [Recovering/Resolving]
  - Feeling abnormal [Recovering/Resolving]
  - Memory impairment [Recovering/Resolving]
  - Rash pruritic [Not Recovered/Not Resolved]
  - Somnolence [Recovering/Resolving]
  - Rash papular [Not Recovered/Not Resolved]
  - Neurological symptom [Unknown]

NARRATIVE: CASE EVENT DATE: 20151115
